FAERS Safety Report 20142942 (Version 1)
Quarter: 2021Q4

REPORT INFORMATION
  Report Type: Spontaneous
  Country: US (occurrence: None)
  Receive Date: 20211202
  Receipt Date: 20211202
  Transmission Date: 20220303
  Serious: No
  Sender: FDA-Public Use
  Company Number: US-ROCHE-2731395

PATIENT
  Sex: Male
  Weight: 81.720 kg

DRUGS (1)
  1. TAMIFLU [Suspect]
     Active Substance: OSELTAMIVIR PHOSPHATE
     Indication: Influenza
     Dosage: RECEIVING THE MEDICATION SIX YEARS AGO
     Route: 048

REACTIONS (2)
  - Headache [Recovered/Resolved]
  - Neck pain [Recovered/Resolved]
